FAERS Safety Report 21733032 (Version 2)
Quarter: 2023Q1

REPORT INFORMATION
  Report Type: Spontaneous
  Country: US (occurrence: US)
  Receive Date: 20221215
  Receipt Date: 20230303
  Transmission Date: 20230418
  Serious: No
  Sender: FDA-Public Use
  Company Number: US-LUPIN PHARMACEUTICALS INC.-2022-14335

PATIENT

DRUGS (10)
  1. ALBUTEROL SULFATE [Suspect]
     Active Substance: ALBUTEROL SULFATE
     Indication: Lung neoplasm malignant
     Dosage: 8 DOSAGE FORM, QD
     Dates: start: 20221111
  2. ALBUTEROL SULFATE [Suspect]
     Active Substance: ALBUTEROL SULFATE
     Indication: Chronic obstructive pulmonary disease
  3. NEURONTIN [Concomitant]
     Active Substance: GABAPENTIN
     Indication: Neuropathy peripheral
     Dosage: UNK, QD
     Route: 065
  4. CITALOPRAM [Concomitant]
     Active Substance: CITALOPRAM HYDROBROMIDE
     Indication: Depression
     Dosage: UNK
     Route: 065
  5. ABILIFY [Concomitant]
     Active Substance: ARIPIPRAZOLE
     Indication: Depression
     Dosage: UNK
     Route: 065
  6. TIZANIDINE [Concomitant]
     Active Substance: TIZANIDINE
     Indication: Muscle spasms
     Dosage: UNK
     Route: 065
  7. LISINOPRIL [Concomitant]
     Active Substance: LISINOPRIL
     Indication: Renal failure
     Dosage: UNK
     Route: 065
  8. OXYGEN [Concomitant]
     Active Substance: OXYGEN
     Indication: Product used for unknown indication
     Dosage: UNK, PRN
     Route: 065
  9. AMBIEN [Concomitant]
     Active Substance: ZOLPIDEM TARTRATE
     Indication: Sleep disorder
     Dosage: UNK
     Route: 065
  10. Zenex [Concomitant]
     Indication: Product used for unknown indication
     Dosage: UNK
     Route: 065

REACTIONS (2)
  - Wrong technique in device usage process [Unknown]
  - Off label use [Unknown]
